FAERS Safety Report 12291016 (Version 1)
Quarter: 2016Q2

REPORT INFORMATION
  Report Type: Not Available
  Country: None (occurrence: US)
  Receive Date: 20160421
  Receipt Date: 20160421
  Transmission Date: 20160815
  Serious: No
  Sender: FDA-Public Use
  Company Number: US-AKORN-28631

PATIENT
  Sex: Female

DRUGS (1)
  1. KETOROLAC TROMETHAMINE OPHTHALMIC SOLUTION [Suspect]
     Active Substance: KETOROLAC TROMETHAMINE

REACTIONS (2)
  - Eye irritation [Recovered/Resolved]
  - Vision blurred [Recovered/Resolved]
